FAERS Safety Report 25354633 (Version 1)
Quarter: 2025Q2

REPORT INFORMATION
  Report Type: Report from Study
  Country: CA (occurrence: CA)
  Receive Date: 20250524
  Receipt Date: 20250524
  Transmission Date: 20250717
  Serious: Yes (Other)
  Sender: CELLTRION
  Company Number: CA-CELLTRION INC.-2024CA010130

PATIENT

DRUGS (7)
  1. ADALIMUMAB-AATY [Suspect]
     Active Substance: ADALIMUMAB-AATY
     Indication: Ankylosing spondylitis
     Dosage: MAINTENANCE-40 MG EVERY 2 WEEKS
     Route: 058
     Dates: start: 20231024
  2. VITAMINS [Concomitant]
     Active Substance: VITAMINS
     Indication: Product used for unknown indication
     Route: 065
  3. CHOLECALCIFEROL [Concomitant]
     Active Substance: CHOLECALCIFEROL
     Indication: Product used for unknown indication
     Route: 065
  4. FOLIC ACID [Concomitant]
     Active Substance: FOLIC ACID
     Indication: Product used for unknown indication
     Route: 065
  5. FISH OIL [Concomitant]
     Active Substance: FISH OIL
     Indication: Product used for unknown indication
     Route: 065
  6. METHOTREXATE [Concomitant]
     Active Substance: METHOTREXATE
     Dosage: 25 MG WEEKLY
     Dates: start: 202106
  7. IRON [Concomitant]
     Active Substance: IRON
     Indication: Product used for unknown indication
     Route: 065

REACTIONS (3)
  - Ankylosing spondylitis [Unknown]
  - Pain in extremity [Not Recovered/Not Resolved]
  - Peripheral swelling [Not Recovered/Not Resolved]
